FAERS Safety Report 4708584-0 (Version None)
Quarter: 2005Q3

REPORT INFORMATION
  Report Type: 
  Country: None (occurrence: None)
  Receive Date: 20050707
  Receipt Date: 20050520
  Transmission Date: 20060218
  Serious: Yes (Hospitalization, Other)
  Sender: FDA-Public Use
  Company Number: US-BRISTOL-MYERS SQUIBB COMPANY-12977641

PATIENT
  Age: 55 Year
  Sex: Male

DRUGS (6)
  1. CETUXIMAB [Suspect]
     Indication: NON-SMALL CELL LUNG CANCER
     Dosage: THERAPY INTERRUPTED (DATE NOT REPORTED) DUE TO ENCEPHALOPATHY.
     Route: 042
     Dates: start: 20050513, end: 20050513
  2. CARBOPLATIN [Suspect]
     Indication: NON-SMALL CELL LUNG CANCER
     Dosage: THERAPY INTERRUPTED (DATE NOT REPORTED) DUE TO ENCEPHALOPATHY.
     Route: 042
     Dates: start: 20050429, end: 20050429
  3. TAXOL [Suspect]
     Indication: NON-SMALL CELL LUNG CANCER
     Dosage: THERAPY INTERRUPTED (DATE NOT REPORTED) DUE TO ENCEPHALOPATHY.
     Route: 042
     Dates: start: 20050429, end: 20050429
  4. COUMADIN [Concomitant]
     Dates: start: 20050422
  5. INDOCIN [Concomitant]
     Dates: start: 20050416
  6. VICODIN [Concomitant]
     Dates: start: 20050416

REACTIONS (3)
  - DEEP VEIN THROMBOSIS [None]
  - ENCEPHALOPATHY [None]
  - METASTASES TO CENTRAL NERVOUS SYSTEM [None]
